FAERS Safety Report 6146146-1 (Version None)
Quarter: 2009Q2

REPORT INFORMATION
  Report Type: 
  Country: None (occurrence: None)
  Receive Date: 20090407
  Receipt Date: 20090330
  Transmission Date: 20091009
  Serious: Yes (Other)
  Sender: FDA-Public Use
  Company Number: US-ROXANE LABORATORIES, INC.-2009-RO-00316RO

PATIENT
  Age: 45 Year
  Sex: Female

DRUGS (15)
  1. ZOLPIDEM [Suspect]
  2. ROXICET [Suspect]
  3. MORPHINE [Suspect]
     Indication: ANAESTHESIA
     Route: 042
  4. ONDANSETRON [Suspect]
     Indication: NAUSEA
  5. LEVOTHYROXINE SODIUM [Suspect]
  6. DEPODUR [Suspect]
     Indication: ANAESTHESIA
     Route: 008
  7. ISOFLURANE [Suspect]
     Indication: ANAESTHESIA
  8. NITROUS OXIDE [Suspect]
     Indication: ANAESTHESIA
  9. DEXMEDETOMIDINE [Suspect]
     Indication: HEART RATE INCREASED
  10. DEXMEDETOMIDINE [Suspect]
     Indication: BLOOD PRESSURE INCREASED
  11. NALOXONE [Suspect]
     Indication: PROPHYLAXIS
  12. NALOXONE [Suspect]
  13. OXYGEN [Suspect]
  14. SCOPOLAMINE DIAMINODIPHENYLSULFONE [Suspect]
  15. BUTALBITAL ACETAMINOPHEN AND CAFFEINE [Concomitant]
     Indication: HEADACHE

REACTIONS (7)
  - BLOOD PRESSURE INCREASED [None]
  - DRUG ADMINISTRATION ERROR [None]
  - HEADACHE [None]
  - HEART RATE INCREASED [None]
  - NAUSEA [None]
  - PAIN [None]
  - SOMNOLENCE [None]
